FAERS Safety Report 10255046 (Version 1)
Quarter: 2014Q2

REPORT INFORMATION
  Report Type: Spontaneous
  Country: US (occurrence: US)
  Receive Date: 20140624
  Receipt Date: 20140624
  Transmission Date: 20141212
  Serious: No
  Sender: FDA-Public Use
  Company Number: US-ASTRAZENECA-2014SE44349

PATIENT
  Age: 60 Year
  Sex: Male
  Weight: 65.8 kg

DRUGS (3)
  1. NEXIUM [Suspect]
     Indication: DYSPEPSIA
     Route: 048
     Dates: start: 2006, end: 20140609
  2. NEXIUM [Suspect]
     Indication: DYSPEPSIA
     Route: 048
     Dates: start: 20140612
  3. NEXIUM 24 HR [Suspect]
     Indication: DYSPEPSIA
     Dosage: TWO CAPSULES IN THE MORNING BEFORE BREAKFAST AND THEN ANOTHER BEFORE DINNER
     Route: 048
     Dates: start: 20140609, end: 20140611

REACTIONS (3)
  - Dyspepsia [Unknown]
  - Drug ineffective [Unknown]
  - Intentional product misuse [Unknown]
